FAERS Safety Report 11785608 (Version 1)
Quarter: 2015Q4

REPORT INFORMATION
  Report Type: Report from Study
  Country: JP (occurrence: JP)
  Receive Date: 20151130
  Receipt Date: 20151130
  Transmission Date: 20160305
  Serious: Yes (Hospitalization)
  Sender: FDA-Public Use
  Company Number: JP-EISAI MEDICAL RESEARCH-EC-2015-012367

PATIENT
  Age: 68 Year
  Sex: Female
  Weight: 52 kg

DRUGS (4)
  1. HALAVEN [Suspect]
     Active Substance: ERIBULIN MESYLATE
     Indication: BREAST CANCER METASTATIC
     Route: 041
     Dates: start: 20141021, end: 20141021
  2. GEBEN [Concomitant]
  3. VOLTAREN [Concomitant]
     Active Substance: DICLOFENAC SODIUM
  4. LENDORMIN D [Concomitant]
     Active Substance: BROTIZOLAM

REACTIONS (1)
  - Interstitial lung disease [Recovered/Resolved]

NARRATIVE: CASE EVENT DATE: 20141028
